FAERS Safety Report 24536601 (Version 1)
Quarter: 2024Q4

REPORT INFORMATION
  Report Type: Spontaneous
  Country: US (occurrence: US)
  Receive Date: 20241022
  Receipt Date: 20241022
  Transmission Date: 20250115
  Serious: No
  Sender: SANOFI AVENTIS
  Company Number: US-SANOFI-02252632

PATIENT
  Age: 66 Year
  Sex: Male

DRUGS (1)
  1. DUPIXENT [Suspect]
     Active Substance: DUPILUMAB
     Indication: Eosinophilic oesophagitis
     Dosage: 200 MG, QW
     Route: 058

REACTIONS (8)
  - Weight decreased [Unknown]
  - Dyspnoea [Unknown]
  - Visual impairment [Unknown]
  - Herpes zoster [Unknown]
  - Skin exfoliation [Unknown]
  - Pruritus [Unknown]
  - Conjunctivitis [Unknown]
  - Off label use [Unknown]
